FAERS Safety Report 17478587 (Version 1)
Quarter: 2020Q1

REPORT INFORMATION
  Report Type: Spontaneous
  Country: FR (occurrence: FR)
  Receive Date: 20200228
  Receipt Date: 20200228
  Transmission Date: 20200409
  Serious: Yes (Other)
  Sender: FDA-Public Use
  Company Number: FR-MYLANLABS-2020M1021780

PATIENT
  Age: 76 Year
  Sex: Female
  Weight: 109 kg

DRUGS (1)
  1. VANCOMYCINE MYLAN 500 MG POUDRE POUR SOLUTION POUR PERFUSION [Suspect]
     Active Substance: VANCOMYCIN
     Indication: DERMO-HYPODERMITIS
     Dosage: 1500 MILLIGRAM, BID
     Route: 041
     Dates: start: 20190902

REACTIONS (1)
  - Skin necrosis [Recovered/Resolved]

NARRATIVE: CASE EVENT DATE: 201909
